FAERS Safety Report 7987213-7 (Version None)
Quarter: 2011Q4

REPORT INFORMATION
  Report Type: 
  Country: None (occurrence: None)
  Receive Date: 20111216
  Receipt Date: 20111206
  Transmission Date: 20120403
  Serious: Yes (Other)
  Sender: FDA-Public Use
  Company Number: PHEH2011US011023

PATIENT
  Sex: Female

DRUGS (9)
  1. HYDROXYCHLOROQUINE SULFATE [Suspect]
     Dosage: UNK
  2. EYE DROPS [Concomitant]
     Dosage: UNK
  3. LYRICA [Concomitant]
     Dosage: UNK
  4. CELEBREX [Concomitant]
     Dosage: UNK
  5. LANSOPRAZOLE [Concomitant]
     Dosage: UNK
  6. DIOVAN HCT [Suspect]
     Dosage: 1 DF (160/12.5MG), QD
  7. VITAMINS NOS [Concomitant]
     Dosage: UNK
  8. OTHER MINERAL SUPPLEMENTS [Concomitant]
     Dosage: UNK
  9. PREDNISONE [Concomitant]
     Dosage: UNK

REACTIONS (2)
  - FIBROMYALGIA [None]
  - RHEUMATOID ARTHRITIS [None]
